FAERS Safety Report 5573214-5 (Version None)
Quarter: 2007Q4

REPORT INFORMATION
  Report Type: 
  Country: None (occurrence: None)
  Receive Date: 20071220
  Receipt Date: 20071127
  Transmission Date: 20080405
  Serious: Yes (Hospitalization)
  Sender: FDA-Public Use
  Company Number: 200717272GPV

PATIENT
  Age: 40 Year
  Sex: Female

DRUGS (3)
  1. FEMODEN (GESTODEN + ETHINYLESTRADIOL) [Suspect]
     Indication: CONTRACEPTION
     Dosage: ORAL
     Route: 048
     Dates: start: 20031003, end: 20051110
  2. MICROGYNON 30 (LEVONORGESTREL + ETHINYLESTRADIOL) [Suspect]
     Dosage: ORAL
     Route: 048
     Dates: start: 20020516
  3. YASMIN (ETHINYLESTRADIOL + DROSPIRENON) [Suspect]
     Dosage: ORAL
     Route: 048
     Dates: start: 20020131

REACTIONS (4)
  - DIZZINESS [None]
  - LOSS OF CONSCIOUSNESS [None]
  - VERTIGO [None]
  - VOMITING [None]
